FAERS Safety Report 4281795-7 (Version None)
Quarter: 2004Q1

REPORT INFORMATION
  Report Type: 
  Country: None (occurrence: None)
  Receive Date: 20040128
  Receipt Date: 20040121
  Transmission Date: 20041129
  Serious: Yes (Hospitalization)
  Sender: FDA-Public Use
  Company Number: DEWYE479722DEC03

PATIENT
  Sex: Male

DRUGS (6)
  1. VENLAFAXINE HCL [Suspect]
     Indication: DEPRESSION
     Dosage: 75 - 375 MG DAILY
     Route: 048
     Dates: start: 19980801, end: 20010302
  2. VENLAFAXINE HCL [Suspect]
     Indication: DEPRESSION
     Dosage: 75 - 375 MG DAILY
     Route: 048
     Dates: start: 20020430, end: 20020624
  3. VENLAFAXINE HCL [Suspect]
     Indication: DEPRESSION
     Dosage: 75 - 375 MG DAILY
     Route: 048
     Dates: start: 20030611, end: 20030923
  4. CARBAMAZEPINE [Concomitant]
  5. VALPROIC ACID [Concomitant]
  6. RISPERDAL [Concomitant]

REACTIONS (4)
  - DISORIENTATION [None]
  - DRUG DEPENDENCE [None]
  - DRUG WITHDRAWAL SYNDROME [None]
  - EUPHORIC MOOD [None]
